FAERS Safety Report 7388257-9 (Version None)
Quarter: 2011Q2

REPORT INFORMATION
  Report Type: 
  Country: None (occurrence: None)
  Receive Date: 20110401
  Receipt Date: 20091114
  Transmission Date: 20111010
  Serious: Yes (Other)
  Sender: FDA-Public Use
  Company Number: US-BAYER-200939576NA

PATIENT
  Sex: Male
  Weight: 81.633 kg

DRUGS (15)
  1. ZOCOR [Concomitant]
  2. MICARDIS [Concomitant]
  3. NEOSYNEPHRINE BADRIAL [Concomitant]
  4. ATENOLOL [Concomitant]
  5. PEPCID AC [Concomitant]
  6. ASPIRIN [Concomitant]
  7. VERSED [Concomitant]
  8. INSULIN 2 [Concomitant]
  9. TRASYLOL [Suspect]
     Indication: CORONARY ARTERY BYPASS
     Dosage: 4 X 200 ML VIALS
     Route: 042
     Dates: start: 20060413
  10. REGLAN [Concomitant]
  11. TRASYLOL [Suspect]
     Indication: AORTIC VALVE REPLACEMENT
  12. DOPAMINE HCL [Concomitant]
  13. VANCOMYCIN [Concomitant]
  14. HEPARIN SODIUM [Concomitant]
  15. PROTAMINE SULFATE [Concomitant]

REACTIONS (5)
  - RENAL FAILURE ACUTE [None]
  - INJURY [None]
  - PAIN [None]
  - RENAL FAILURE [None]
  - UNEVALUABLE EVENT [None]
